FAERS Safety Report 25042049 (Version 2)
Quarter: 2025Q3

REPORT INFORMATION
  Report Type: Spontaneous
  Country: US (occurrence: US)
  Receive Date: 20250305
  Receipt Date: 20250924
  Transmission Date: 20251020
  Serious: No
  Sender: BRISTOL-MYERS SQUIBB COMPANY
  Company Number: US-BRISTOL-MYERS SQUIBB COMPANY-2025-031319

PATIENT
  Age: 53 Year
  Sex: Female

DRUGS (4)
  1. ZEPOSIA 7-DAY STARTER PACK [Suspect]
     Active Substance: OZANIMOD HYDROCHLORIDE
     Indication: Multiple sclerosis
     Dosage: FREQ: FOR 4 DAYS
     Dates: start: 202502
  2. ZEPOSIA 7-DAY STARTER PACK [Suspect]
     Active Substance: OZANIMOD HYDROCHLORIDE
     Dosage: FREQ: FOR 3 DAYS
     Dates: start: 202502
  3. ZEPOSIA 7-DAY STARTER PACK [Suspect]
     Active Substance: OZANIMOD HYDROCHLORIDE
     Dosage: FREQ: ON DAY 8 AND THEREAFTER
     Dates: start: 202502
  4. KESIMPTA [Concomitant]
     Active Substance: OFATUMUMAB
     Indication: Product used for unknown indication

REACTIONS (3)
  - Multiple sclerosis [Unknown]
  - Nausea [Unknown]
  - Abdominal pain [Unknown]
